FAERS Safety Report 7230297-4 (Version None)
Quarter: 2011Q1

REPORT INFORMATION
  Report Type: 
  Country: None (occurrence: None)
  Receive Date: 20110118
  Receipt Date: 20110111
  Transmission Date: 20110831
  Serious: No
  Sender: FDA-Public Use
  Company Number: US-PFIZER INC-2011007927

PATIENT

DRUGS (2)
  1. ACCUPRIL [Concomitant]
  2. QUINAPRIL HCL [Suspect]

REACTIONS (2)
  - SWELLING FACE [None]
  - HYPERSENSITIVITY [None]
